FAERS Safety Report 6476132-3 (Version None)
Quarter: 2009Q4

REPORT INFORMATION
  Report Type: 
  Country: None (occurrence: None)
  Receive Date: 20091204
  Receipt Date: 20090114
  Transmission Date: 20100525
  Serious: No
  Sender: FDA-Public Use
  Company Number: US-AMGEN-KDL328479

PATIENT
  Sex: Female

DRUGS (3)
  1. ENBREL [Suspect]
     Indication: DERMATOMYOSITIS
     Route: 058
     Dates: start: 20060301
  2. PLAQUENIL [Concomitant]
     Route: 048
  3. METHOTREXATE [Concomitant]
     Route: 048

REACTIONS (5)
  - INFLAMMATION [None]
  - INSOMNIA [None]
  - NASAL CONGESTION [None]
  - PURULENT DISCHARGE [None]
  - SKIN ULCER [None]
